FAERS Safety Report 7594459-9 (Version None)
Quarter: 2011Q3

REPORT INFORMATION
  Report Type: 
  Country: None (occurrence: None)
  Receive Date: 20110707
  Receipt Date: 20110629
  Transmission Date: 20111222
  Serious: Yes (Hospitalization)
  Sender: FDA-Public Use
  Company Number: AR-AMGEN-ARGSP2011028352

PATIENT
  Age: 72 Year
  Sex: Female

DRUGS (2)
  1. HYOSCINE [Suspect]
     Indication: CHOLELITHIASIS
     Dosage: UNK
     Dates: start: 20110501, end: 20110501
  2. ENBREL [Suspect]
     Indication: RHEUMATOID ARTHRITIS
     Dosage: 25 MG, 2X/WEEK
     Route: 058
     Dates: start: 20090101

REACTIONS (3)
  - CHOLELITHIASIS [None]
  - ARRHYTHMIA [None]
  - LIVER DISORDER [None]
